FAERS Safety Report 4327509-3 (Version None)
Quarter: 2004Q1

REPORT INFORMATION
  Report Type: 
  Country: None (occurrence: None)
  Receive Date: 20040329
  Receipt Date: 20040329
  Transmission Date: 20041129
  Serious: Yes (Life-Threatening)
  Sender: FDA-Public Use
  Company Number: None

PATIENT
  Age: 71 Year
  Sex: Male
  Weight: 79 kg

DRUGS (1)
  1. HEPARIN [Suspect]
     Indication: ISCHAEMIA
     Dosage: PER A PTT
     Dates: start: 20040210, end: 20040224

REACTIONS (2)
  - DEPRESSED LEVEL OF CONSCIOUSNESS [None]
  - RETROPERITONEAL HAEMORRHAGE [None]
